FAERS Safety Report 8260273-4 (Version None)
Quarter: 2012Q2

REPORT INFORMATION
  Report Type: 
  Country: None (occurrence: None)
  Receive Date: 20120404
  Receipt Date: 20120321
  Transmission Date: 20120825
  Serious: Yes (Death, Other)
  Sender: FDA-Public Use
  Company Number: JP-ROCHE-1008183

PATIENT
  Age: 7 Decade
  Sex: Male

DRUGS (13)
  1. FLUOROURACIL [Concomitant]
     Dosage: DOSAGE IS UNCERTAIN.
     Route: 041
     Dates: end: 20100401
  2. AVASTIN [Suspect]
     Dosage: DOSAGE IS UNCERTAIN.
     Route: 041
  3. FLUOROURACIL [Concomitant]
     Indication: COLON CANCER METASTATIC
     Dosage: DOSAGE IS UNCERTAIN.
     Route: 040
     Dates: end: 20100401
  4. LEVOLEUCOVORIN CALCIUM [Concomitant]
     Indication: COLON CANCER METASTATIC
     Dosage: DOSAGE IS UNCERTAIN.
     Route: 041
     Dates: end: 20100401
  5. FLUOROURACIL [Concomitant]
     Dosage: DOSAGE IS UNCERTAIN.
     Route: 041
  6. FLUOROURACIL [Concomitant]
     Dosage: DOSAGE IS UNCERTAIN.
     Route: 040
  7. IRINOTECAN HCL [Concomitant]
     Indication: COLON CANCER METASTATIC
     Dosage: DOSAGE IS UNCERTAIN.
     Route: 041
     Dates: end: 20100401
  8. AVASTIN [Suspect]
     Indication: COLON CANCER METASTATIC
     Dosage: DOSAGE IS UNCERTAIN.
     Route: 041
     Dates: end: 20100401
  9. AVASTIN [Suspect]
     Dosage: DOSAGE IS UNCERTAIN.
     Route: 041
     Dates: start: 20100601
  10. FLUOROURACIL [Concomitant]
     Dosage: DOSAGE IS UNCERTAIN.
     Route: 041
     Dates: start: 20100601
  11. LEVOLEUCOVORIN CALCIUM [Concomitant]
     Dosage: DOSAGE IS UNCERTAIN.
     Route: 041
     Dates: start: 20100601
  12. LEVOLEUCOVORIN CALCIUM [Concomitant]
     Dosage: DOSAGE IS UNCERTAIN.
     Route: 041
  13. FLUOROURACIL [Concomitant]
     Dosage: DOSAGE IS UNCERTAIN.
     Route: 040
     Dates: start: 20100601

REACTIONS (7)
  - LACUNAR INFARCTION [None]
  - HYPERAMMONAEMIA [None]
  - HEPATOCELLULAR INJURY [None]
  - ILEUS [None]
  - ALTERED STATE OF CONSCIOUSNESS [None]
  - GENERAL PHYSICAL HEALTH DETERIORATION [None]
  - MALIGNANT ASCITES [None]
